FAERS Safety Report 14243832 (Version 3)
Quarter: 2018Q1

REPORT INFORMATION
  Report Type: Report from Study
  Country: US (occurrence: US)
  Receive Date: 20171201
  Receipt Date: 20180206
  Transmission Date: 20180508
  Serious: Yes (Life-Threatening, Hospitalization, Other)
  Sender: FDA-Public Use
  Company Number: PHHO2014US018313

PATIENT
  Age: 8 Year
  Sex: Male
  Weight: 23.9 kg

DRUGS (7)
  1. NELARABINE [Suspect]
     Active Substance: NELARABINE
     Indication: T-CELL TYPE ACUTE LEUKAEMIA
     Dosage: 650 MG/M2 DAYS 1-5 AND 43-47
     Route: 042
     Dates: start: 20140705, end: 20140709
  2. VINCRISTINE SULPHATE [Suspect]
     Active Substance: VINCRISTINE SULFATE
     Indication: T-CELL TYPE ACUTE LEUKAEMIA
     Dosage: 1.5 MG/M2, CYCLIC
     Route: 042
     Dates: start: 20140606
  3. PREDNISONE. [Suspect]
     Active Substance: PREDNISONE
     Indication: T-CELL TYPE ACUTE LEUKAEMIA
     Route: 048
  4. CYTARABINE. [Suspect]
     Active Substance: CYTARABINE
     Indication: T-CELL TYPE ACUTE LEUKAEMIA
     Dosage: 75 MG/M2, CYCLIC
     Route: 037
     Dates: start: 20140606
  5. METHOTREXATE. [Suspect]
     Active Substance: METHOTREXATE
     Indication: T-CELL TYPE ACUTE LEUKAEMIA
     Route: 037
  6. DAUNORUBICIN [Suspect]
     Active Substance: DAUNORUBICIN
     Indication: T-CELL TYPE ACUTE LEUKAEMIA
     Dosage: UNK
     Route: 042
     Dates: start: 20140606
  7. PEGASPARGASE [Suspect]
     Active Substance: PEGASPARGASE
     Indication: T-CELL TYPE ACUTE LEUKAEMIA
     Dosage: CYCLIC
     Route: 030
     Dates: start: 20140606

REACTIONS (18)
  - Encephalopathy [Unknown]
  - Depressed level of consciousness [Unknown]
  - Posterior reversible encephalopathy syndrome [Unknown]
  - Agitation [Unknown]
  - Respiratory failure [Unknown]
  - Abdominal pain [Unknown]
  - Hypernatraemia [Recovered/Resolved]
  - Upper gastrointestinal haemorrhage [Unknown]
  - Confusional state [Unknown]
  - Hyperkalaemia [Recovered/Resolved]
  - Sepsis [Unknown]
  - Peripheral motor neuropathy [Unknown]
  - Acute kidney injury [Unknown]
  - Pain in extremity [Unknown]
  - Paraesthesia [Unknown]
  - Hyponatraemia [Unknown]
  - Anxiety [Unknown]
  - Hypocalcaemia [Unknown]

NARRATIVE: CASE EVENT DATE: 20140705
